FAERS Safety Report 18012882 (Version 1)
Quarter: 2020Q3

REPORT INFORMATION
  Report Type: Spontaneous
  Country: US (occurrence: US)
  Receive Date: 20200710
  Receipt Date: 20200710
  Transmission Date: 20201103
  Serious: Yes (Disabling)
  Sender: FDA-Public Use
  Company Number: None

PATIENT
  Age: 73 Year
  Sex: Female
  Weight: 50.4 kg

DRUGS (2)
  1. BUDESONIDE DR/ER 3MG CAP [Suspect]
     Active Substance: BUDESONIDE
     Indication: COLITIS MICROSCOPIC
     Dosage: ?          QUANTITY:1 CAPSULE(S);?
     Route: 048
     Dates: start: 20200520, end: 20200710
  2. MULTIPLE VITAMINS [Concomitant]
     Active Substance: VITAMINS

REACTIONS (12)
  - Dizziness [None]
  - Headache [None]
  - Arthralgia [None]
  - Haemorrhoids [None]
  - Thirst [None]
  - Oropharyngeal pain [None]
  - Peripheral swelling [None]
  - Dysphonia [None]
  - Chills [None]
  - Dry mouth [None]
  - Insomnia [None]
  - Myalgia [None]

NARRATIVE: CASE EVENT DATE: 20200710
